FAERS Safety Report 21780015 (Version 15)
Quarter: 2024Q4

REPORT INFORMATION
  Report Type: Report from Study
  Country: US (occurrence: US)
  Receive Date: 20221226
  Receipt Date: 20241011
  Transmission Date: 20250115
  Serious: Yes (Hospitalization)
  Sender: TAKEDA
  Company Number: US-TAKEDA-2022TUS087855

PATIENT
  Age: 59 Year
  Sex: Female

DRUGS (25)
  1. TEDUGLUTIDE [Suspect]
     Active Substance: TEDUGLUTIDE
     Indication: Short-bowel syndrome
     Dosage: 0.31 MILLILITER, QD
     Route: 058
     Dates: start: 20221013
  2. TEDUGLUTIDE [Suspect]
     Active Substance: TEDUGLUTIDE
     Indication: Short-bowel syndrome
     Dosage: 0.31 MILLILITER, QD
     Route: 058
     Dates: start: 20221013
  3. TEDUGLUTIDE [Suspect]
     Active Substance: TEDUGLUTIDE
     Indication: Short-bowel syndrome
     Dosage: 0.31 MILLILITER, QD
     Route: 058
     Dates: start: 20221013
  4. TEDUGLUTIDE [Suspect]
     Active Substance: TEDUGLUTIDE
     Indication: Short-bowel syndrome
     Dosage: 0.31 MILLILITER, QD
     Route: 058
     Dates: start: 20221013
  5. TEDUGLUTIDE [Suspect]
     Active Substance: TEDUGLUTIDE
     Dosage: 0.31 MILLILITER, QD
     Route: 058
     Dates: start: 20221021
  6. TEDUGLUTIDE [Suspect]
     Active Substance: TEDUGLUTIDE
     Dosage: 0.31 MILLILITER, QD
     Route: 058
     Dates: start: 20221021
  7. TEDUGLUTIDE [Suspect]
     Active Substance: TEDUGLUTIDE
     Dosage: 0.31 MILLILITER, QD
     Route: 058
     Dates: start: 20221021
  8. TEDUGLUTIDE [Suspect]
     Active Substance: TEDUGLUTIDE
     Dosage: 0.31 MILLILITER, QD
     Route: 058
     Dates: start: 20221021
  9. TEDUGLUTIDE [Suspect]
     Active Substance: TEDUGLUTIDE
     Dosage: 0.31 MILLILITER, QD
     Route: 058
     Dates: start: 202210
  10. TEDUGLUTIDE [Suspect]
     Active Substance: TEDUGLUTIDE
     Dosage: 0.31 MILLILITER, QD
     Route: 058
     Dates: start: 202210
  11. TEDUGLUTIDE [Suspect]
     Active Substance: TEDUGLUTIDE
     Dosage: 0.31 MILLILITER, QD
     Route: 058
     Dates: start: 202210
  12. TEDUGLUTIDE [Suspect]
     Active Substance: TEDUGLUTIDE
     Dosage: 0.31 MILLILITER, QD
     Route: 058
     Dates: start: 202210
  13. TEDUGLUTIDE [Suspect]
     Active Substance: TEDUGLUTIDE
     Dosage: 0.31 MILLILITER, QD
     Route: 058
     Dates: start: 20221101
  14. TEDUGLUTIDE [Suspect]
     Active Substance: TEDUGLUTIDE
     Dosage: 0.31 MILLILITER, QD
     Route: 058
     Dates: start: 20221101
  15. TEDUGLUTIDE [Suspect]
     Active Substance: TEDUGLUTIDE
     Dosage: 0.31 MILLILITER, QD
     Route: 058
     Dates: start: 20221101
  16. TEDUGLUTIDE [Suspect]
     Active Substance: TEDUGLUTIDE
     Dosage: 0.31 MILLILITER, QD
     Route: 058
     Dates: start: 20221101
  17. TEDUGLUTIDE [Suspect]
     Active Substance: TEDUGLUTIDE
     Dosage: 0.31 MILLILITER, QD
     Route: 058
     Dates: start: 20221112
  18. TEDUGLUTIDE [Suspect]
     Active Substance: TEDUGLUTIDE
     Dosage: 0.31 MILLILITER, QD
     Route: 058
     Dates: start: 20221112
  19. TEDUGLUTIDE [Suspect]
     Active Substance: TEDUGLUTIDE
     Dosage: 0.31 MILLILITER, QD
     Route: 058
     Dates: start: 20221112
  20. TEDUGLUTIDE [Suspect]
     Active Substance: TEDUGLUTIDE
     Dosage: 0.31 MILLILITER, QD
     Route: 058
     Dates: start: 20221112
  21. TEDUGLUTIDE [Suspect]
     Active Substance: TEDUGLUTIDE
     Dosage: 0.31 MILLILITER, QD
     Route: 058
  22. TEDUGLUTIDE [Suspect]
     Active Substance: TEDUGLUTIDE
     Dosage: 0.31 MILLILITER, QD
     Route: 058
  23. TEDUGLUTIDE [Suspect]
     Active Substance: TEDUGLUTIDE
     Dosage: 0.31 MILLILITER, QD
     Route: 058
  24. TEDUGLUTIDE [Suspect]
     Active Substance: TEDUGLUTIDE
     Dosage: 0.31 MILLILITER, QD
     Route: 058
  25. LINZESS [Suspect]
     Active Substance: LINACLOTIDE
     Indication: Product used for unknown indication
     Dosage: UNK
     Route: 065

REACTIONS (26)
  - Platelet count increased [Unknown]
  - White blood cell count increased [Unknown]
  - Blood potassium decreased [Unknown]
  - Diarrhoea [Unknown]
  - Pancreatic enzymes increased [Unknown]
  - Stomal hernia [Unknown]
  - Peripheral swelling [Not Recovered/Not Resolved]
  - Swelling [Not Recovered/Not Resolved]
  - Swelling face [Not Recovered/Not Resolved]
  - Weight increased [Not Recovered/Not Resolved]
  - Gastrointestinal motility disorder [Unknown]
  - Blood cholesterol increased [Unknown]
  - Gastric mucosal lesion [Unknown]
  - Constipation [Unknown]
  - Blood potassium abnormal [Unknown]
  - Dermatitis contact [Unknown]
  - Eczema [Unknown]
  - Rubber sensitivity [Unknown]
  - Blood magnesium decreased [Unknown]
  - Headache [Unknown]
  - Influenza [Unknown]
  - Nausea [Unknown]
  - Abdominal pain upper [Unknown]
  - Abdominal pain [Not Recovered/Not Resolved]
  - Dyspnoea [Unknown]
  - Abdominal hernia [Unknown]

NARRATIVE: CASE EVENT DATE: 20240604
